FAERS Safety Report 6525409-1 (Version None)
Quarter: 2009Q4

REPORT INFORMATION
  Report Type: 
  Country: None (occurrence: None)
  Receive Date: 20091222
  Receipt Date: 20091214
  Transmission Date: 20100525
  Serious: Yes (Death, Life-Threatening, Hospitalization)
  Sender: FDA-Public Use
  Company Number: 2009009060

PATIENT
  Age: 56 Year
  Sex: Female
  Weight: 71 kg

DRUGS (9)
  1. TREANDA [Suspect]
     Indication: MYELOMA RECURRENCE
     Dosage: 200 MG, UID/QD, INTRAVENOUS
     Route: 042
     Dates: start: 20090521, end: 20090522
  2. DEXAMETHASONE TAB [Concomitant]
  3. VELCADE (BORTEZOMIBE) [Concomitant]
  4. THALIDOMIDE [Concomitant]
  5. PREDNISOLONE (PRENISOLONE) [Concomitant]
  6. OMEPRAZOLE [Concomitant]
  7. FLUCONAZOLE [Concomitant]
  8. SEPTRA [Concomitant]
  9. LORON (CLODRONATE DISODIUM) [Concomitant]

REACTIONS (3)
  - BONE MARROW FAILURE [None]
  - MALIGNANT NEOPLASM PROGRESSION [None]
  - MULTIPLE MYELOMA [None]
